FAERS Safety Report 15560836 (Version 9)
Quarter: 2021Q4

REPORT INFORMATION
  Report Type: Spontaneous
  Country: US (occurrence: US)
  Receive Date: 20181029
  Receipt Date: 20211022
  Transmission Date: 20220303
  Serious: No
  Sender: FDA-Public Use
  Company Number: US-PFIZER INC-2018440893

PATIENT
  Age: 69 Year
  Sex: Female

DRUGS (1)
  1. XELJANZ [Suspect]
     Active Substance: TOFACITINIB CITRATE
     Dosage: 5 MG

REACTIONS (13)
  - Drug ineffective [Unknown]
  - Weight increased [Unknown]
  - Hordeolum [Unknown]
  - Nasopharyngitis [Unknown]
  - Pulmonary pain [Unknown]
  - Sinusitis [Unknown]
  - Rhinorrhoea [Unknown]
  - Pain [Not Recovered/Not Resolved]
  - Muscle spasms [Unknown]
  - Pruritus [Unknown]
  - Malaise [Unknown]
  - Energy increased [Unknown]
  - Laboratory test abnormal [Unknown]
